FAERS Safety Report 8720240 (Version 3)
Quarter: 2012Q4

REPORT INFORMATION
  Report Type: 
  Country: JP (occurrence: JP)
  Receive Date: 20120813
  Receipt Date: 20121004
  Transmission Date: 20130627
  Serious: Yes (Hospitalization, Other)
  Sender: FDA-Public Use
  Company Number: PHHY2012JP069290

PATIENT
  Age: 56 Year
  Sex: Male

DRUGS (5)
  1. VOLTAREN SR [Suspect]
     Indication: RHEUMATOID ARTHRITIS
     Dosage: 37.5 mg, Two to three capsules daily
     Route: 048
     Dates: start: 201112, end: 201206
  2. PROGRAF [Concomitant]
     Indication: RHEUMATOID ARTHRITIS
     Dosage: 1 mg,
     Route: 048
     Dates: start: 2011
  3. GASTER [Concomitant]
     Indication: LIVER DISORDER
     Dosage: 40 mg,
     Route: 048
  4. URSO [Concomitant]
     Indication: LIVER DISORDER
     Dosage: 600 mg,
     Route: 048
     Dates: start: 201112
  5. PREDNISOLONE [Concomitant]
     Indication: RHEUMATOID ARTHRITIS
     Dosage: 4 mg, UNK
     Route: 048
     Dates: start: 2011

REACTIONS (8)
  - Renal impairment [Unknown]
  - Ascites [Recovering/Resolving]
  - Oedema [Unknown]
  - Hypoalbuminaemia [Unknown]
  - IgA nephropathy [Unknown]
  - Renal disorder [Unknown]
  - Haemoglobin decreased [Unknown]
  - Haematocrit decreased [Recovering/Resolving]
